FAERS Safety Report 5352142-4 (Version None)
Quarter: 2007Q2

REPORT INFORMATION
  Report Type: 
  Country: None (occurrence: None)
  Receive Date: 20070606
  Receipt Date: 20070522
  Transmission Date: 20071010
  Serious: Yes (Death, Hospitalization)
  Sender: FDA-Public Use
  Company Number: 8021722

PATIENT
  Age: 63 Year
  Sex: Female

DRUGS (12)
  1. KEPPRA [Suspect]
     Indication: PARTIAL SEIZURES
     Dosage: 500 MG /D PO
     Route: 048
     Dates: start: 20060720, end: 20060724
  2. KEPPRA [Suspect]
     Indication: PARTIAL SEIZURES
     Dosage: 500 MG 2/D
     Dates: start: 20060725
  3. SOLDESAM /00016002/ [Concomitant]
  4. WARFARIN SODIUM [Concomitant]
  5. OMEPRAZOLE [Concomitant]
  6. CHEMOTHERAPY [Concomitant]
  7. FOLINFRAV [Concomitant]
  8. DOBETIN /00056201/ [Concomitant]
  9. ESOMEPRAZOLE MAGNESIUM [Concomitant]
  10. NIMESULIDE [Concomitant]
  11. MODURETIC 5-50 [Concomitant]
  12. LORAZEPAM [Concomitant]

REACTIONS (3)
  - CONDITION AGGRAVATED [None]
  - HEPATITIS ACUTE [None]
  - HEPATORENAL FAILURE [None]
